FAERS Safety Report 13670986 (Version 1)
Quarter: 2017Q2

REPORT INFORMATION
  Report Type: Spontaneous
  Country: US (occurrence: US)
  Receive Date: 20170620
  Receipt Date: 20170620
  Transmission Date: 20170830
  Serious: No
  Sender: FDA-Public Use
  Company Number: US-ROCHE-1551325

PATIENT
  Age: 32 Year
  Sex: Female

DRUGS (2)
  1. XELODA [Suspect]
     Active Substance: CAPECITABINE
     Indication: NEOPLASM MALIGNANT
     Dosage: THREE TABLET BY MOUTH EVERY MORNING AND FOUR TABLET IN EVENING FOR 14 DAYS OUT OF 21 CYCLE DAYS
     Route: 048
  2. XELODA [Suspect]
     Active Substance: CAPECITABINE
     Dosage: THREE TIMES IN MORNING AND EVENING IN A DAY FOR 14 DAYS OUT OF 21 CYCLE
     Route: 048

REACTIONS (2)
  - Palmar-plantar erythrodysaesthesia syndrome [Unknown]
  - Anxiety [Unknown]
